FAERS Safety Report 8494797-1 (Version None)
Quarter: 2012Q3

REPORT INFORMATION
  Report Type: 
  Country: None (occurrence: None)
  Receive Date: 20120709
  Receipt Date: 20120702
  Transmission Date: 20120928
  Serious: Yes (Hospitalization)
  Sender: FDA-Public Use
  Company Number: US-BAYER-2011-119965

PATIENT
  Age: 30 Year
  Sex: Female

DRUGS (10)
  1. MULTI-VITAMIN [Concomitant]
     Dosage: DAILY
     Route: 048
  2. DROSPIRENONE AND ETHINYL ESTRADIOL [Suspect]
  3. VALACICLOVIR [Concomitant]
     Dosage: 500 MG, UNK
     Route: 048
  4. METRONIDAZOLE [Concomitant]
     Indication: VAGINAL DISCHARGE
     Dosage: 500 MG TWICE A DAY [TIMES] 7 DAYS
     Route: 048
  5. VITAMIN D [Concomitant]
     Dosage: 2000 INTERNATIONAL UNITS DAILY
  6. VITAMIN B-12 [Concomitant]
     Dosage: 500 MCG DAILY
     Route: 048
  7. IRON [Concomitant]
     Dosage: 65 MG,DAILY
  8. FLUCONAZOLE [Concomitant]
     Indication: VAGINAL DISCHARGE
     Dosage: 150 MG TWICE A DAY [TIMES] 7 DAYS
     Route: 048
     Dates: start: 20110801
  9. YASMIN [Suspect]
     Dosage: UNK
     Route: 048
  10. YAZ [Suspect]
     Dosage: UNK
     Route: 048

REACTIONS (2)
  - PULMONARY EMBOLISM [None]
  - INJURY [None]
